FAERS Safety Report 9637359 (Version 2)
Quarter: 2014Q3

REPORT INFORMATION
  Report Type: Report from Study
  Country: MX (occurrence: MX)
  Receive Date: 20131022
  Receipt Date: 20140702
  Transmission Date: 20150326
  Serious: Yes (Hospitalization, Other)
  Sender: FDA-Public Use
  Company Number: PHHY2013MX117879

PATIENT
  Age: 71 Year
  Sex: Female

DRUGS (5)
  1. ZELMAC [Suspect]
     Active Substance: TEGASEROD
     Dosage: 2 DF, DAILY
     Route: 048
     Dates: start: 201305, end: 201305
  2. ZELMAC [Suspect]
     Active Substance: TEGASEROD
     Dosage: 2 DF, DAILY
     Route: 048
     Dates: start: 20130922
  3. ZELMAC [Suspect]
     Active Substance: TEGASEROD
     Indication: IRRITABLE BOWEL SYNDROME
     Dosage: 2 DF, DAILY
     Route: 048
     Dates: start: 2007, end: 201106
  4. ZELMAC [Suspect]
     Active Substance: TEGASEROD
     Dosage: 2 DF, DAILY
     Route: 048
     Dates: start: 2012
  5. ZELMAC [Suspect]
     Active Substance: TEGASEROD
     Dosage: 3 DF, DAILY
     Route: 048
     Dates: end: 201305

REACTIONS (8)
  - Glucose tolerance impaired [Recovering/Resolving]
  - Gallbladder disorder [Recovered/Resolved]
  - Urinary tract infection bacterial [Recovered/Resolved]
  - Depression [Recovered/Resolved]
  - Blood glucose increased [Recovering/Resolving]
  - Constipation [Not Recovered/Not Resolved]
  - General physical health deterioration [Unknown]
  - Gastroenteritis viral [Unknown]

NARRATIVE: CASE EVENT DATE: 201305
